FAERS Safety Report 24890534 (Version 1)
Quarter: 2025Q1

REPORT INFORMATION
  Report Type: Spontaneous
  Country: CN (occurrence: CN)
  Receive Date: 20250127
  Receipt Date: 20250127
  Transmission Date: 20250409
  Serious: Yes (Other)
  Sender: BAYER HEALTHCARE PHARMACEUTICALS INC.
  Company Number: CN-BAYER-2025A012347

PATIENT
  Age: 68 Year
  Sex: Female
  Weight: 64 kg

DRUGS (2)
  1. ULTRAVIST [Suspect]
     Active Substance: IOPROMIDE
     Indication: Computerised tomogram head
     Route: 041
     Dates: start: 20250125, end: 20250125
  2. ULTRAVIST [Suspect]
     Active Substance: IOPROMIDE
     Indication: Arteriogram carotid

REACTIONS (4)
  - Pruritus [Recovered/Resolved]
  - Rash vesicular [Recovered/Resolved]
  - Tongue paralysis [None]
  - Respiratory rate increased [None]

NARRATIVE: CASE EVENT DATE: 20250125
